FAERS Safety Report 14801546 (Version 1)
Quarter: 2018Q2

REPORT INFORMATION
  Report Type: Spontaneous
  Country: US (occurrence: US)
  Receive Date: 20180416
  Receipt Date: 20180416
  Transmission Date: 20180711
  Serious: Yes (Disabling)
  Sender: FDA-Public Use
  Company Number: None

PATIENT
  Age: 43 Year
  Sex: Female
  Weight: 62.55 kg

DRUGS (2)
  1. SYNTHROID [Suspect]
     Active Substance: LEVOTHYROXINE SODIUM
     Indication: THYROIDECTOMY
     Dosage: ?          QUANTITY:30 TABLET(S);?
     Route: 048
  2. SYNTHROID [Suspect]
     Active Substance: LEVOTHYROXINE SODIUM
     Indication: PAPILLARY THYROID CANCER
     Dosage: ?          QUANTITY:30 TABLET(S);?
     Route: 048

REACTIONS (13)
  - Prescription form tampering [None]
  - Product solubility abnormal [None]
  - Diarrhoea [None]
  - Chest pain [None]
  - Victim of crime [None]
  - Nausea [None]
  - Therapy change [None]
  - Tachycardia [None]
  - Product quality issue [None]
  - Product taste abnormal [None]
  - Fatigue [None]
  - Weight increased [None]
  - Abdominal distension [None]

NARRATIVE: CASE EVENT DATE: 20180328
